FAERS Safety Report 21889907 (Version 1)
Quarter: 2023Q1

REPORT INFORMATION
  Report Type: Spontaneous
  Country: US (occurrence: US)
  Receive Date: 20230120
  Receipt Date: 20230120
  Transmission Date: 20230418
  Serious: Yes (Other)
  Sender: FDA-Public Use
  Company Number: US-SHIONOGI, INC-2023000003

PATIENT
  Age: 35 Year
  Sex: Female

DRUGS (7)
  1. FETROJA [Suspect]
     Active Substance: CEFIDEROCOL SULFATE TOSYLATE
     Indication: Escherichia infection
     Dosage: 2 G, 8 HOUR OVER 3 HOURS
     Route: 042
  2. GENTAMICIN [Concomitant]
     Active Substance: GENTAMICIN
     Indication: Escherichia infection
     Route: 065
  3. TIGECYCLINE [Concomitant]
     Active Substance: TIGECYCLINE
     Indication: Pyrexia
     Route: 065
  4. CEFTAZIDIME [Concomitant]
     Active Substance: CEFTAZIDIME
     Indication: Escherichia infection
     Route: 065
  5. AVIBACTAM [Concomitant]
     Active Substance: AVIBACTAM
     Indication: Escherichia infection
     Route: 065
  6. AZTREONAM [Concomitant]
     Active Substance: AZTREONAM
     Indication: Escherichia infection
     Route: 065
  7. MEROPENEM [Concomitant]
     Active Substance: MEROPENEM
     Indication: Escherichia infection
     Route: 065

REACTIONS (2)
  - Pathogen resistance [Recovered/Resolved]
  - Drug resistance [Unknown]
